FAERS Safety Report 4445847-0 (Version None)
Quarter: 2004Q3

REPORT INFORMATION
  Report Type: 
  Country: None (occurrence: None)
  Receive Date: 20040903
  Receipt Date: 20040823
  Transmission Date: 20050211
  Serious: Yes (Hospitalization)
  Sender: FDA-Public Use
  Company Number: 2004-DE-04487DE

PATIENT
  Age: 88 Year
  Sex: Female

DRUGS (6)
  1. AGGRENOX [Suspect]
     Dosage: 1 ANZ (SEE TEXT, 0-1-0) PO
     Route: 048
     Dates: start: 20040822
  2. EUTHYROX (LEVOTHYROXINE SODIUM) (NR) [Concomitant]
  3. ADUMBRAN (OXAZEPAM) (NR) [Concomitant]
  4. DELIX (RAMIPRIL) (NR) [Concomitant]
  5. SORTIS (NR) [Concomitant]
  6. HEPARIN (NR) [Concomitant]

REACTIONS (2)
  - ANGINA PECTORIS [None]
  - MYOCARDIAL INFARCTION [None]
